APPROVED DRUG PRODUCT: ENTECAVIR
Active Ingredient: ENTECAVIR
Strength: 1MG
Dosage Form/Route: TABLET;ORAL
Application: A211978 | Product #002
Applicant: SUNSHINE LAKE PHARMA CO LTD
Approved: May 20, 2020 | RLD: No | RS: No | Type: DISCN